FAERS Safety Report 16475909 (Version 4)
Quarter: 2020Q1

REPORT INFORMATION
  Report Type: Spontaneous
  Country: SK (occurrence: SK)
  Receive Date: 20190625
  Receipt Date: 20200220
  Transmission Date: 20200409
  Serious: Yes (Hospitalization, Other)
  Sender: FDA-Public Use
  Company Number: SK-MYLANLABS-2019M1058312

PATIENT
  Age: 44 Year
  Sex: Female

DRUGS (18)
  1. IVABRADINE [Suspect]
     Active Substance: IVABRADINE
     Indication: TACHYCARDIA
     Dosage: UNK, QD
     Route: 065
  2. VERAPAMIL [Suspect]
     Active Substance: VERAPAMIL HYDROCHLORIDE
     Indication: BLOOD PRESSURE INCREASED
     Dosage: UNK
     Route: 065
  3. FUROSEMIDE. [Concomitant]
     Active Substance: FUROSEMIDE
     Indication: OEDEMA
     Dosage: UNK
     Route: 065
  4. RILMENIDINE [Concomitant]
     Active Substance: RILMENIDINE
     Indication: HYPERTENSION
  5. FUROSEMIDE. [Concomitant]
     Active Substance: FUROSEMIDE
     Indication: HYPERTENSION
  6. LEVOCETIRIZINE [Concomitant]
     Active Substance: LEVOCETIRIZINE
     Dosage: UNK
  7. FOSTER [Concomitant]
     Active Substance: BECLOMETHASONE\FORMOTEROL
     Indication: PULMONARY FIBROSIS
     Dosage: BECLOMETHASONE 100 MCG,FORMOTEROL 6 MCG, 2 X1
     Route: 055
     Dates: start: 2017
  8. RILMENIDINE [Concomitant]
     Active Substance: RILMENIDINE
     Indication: COUGH
     Dosage: UNK
     Route: 042
  9. PREDNISON [Suspect]
     Active Substance: PREDNISONE
     Indication: INTERSTITIAL LUNG DISEASE
  10. METHYLPREDNISOLONE. [Suspect]
     Active Substance: METHYLPREDNISOLONE
     Indication: INTERSTITIAL LUNG DISEASE
     Dosage: 250 MG; 3 TIMES 250 MG PER MONTH
  11. TRANDOLAPRIL. [Suspect]
     Active Substance: TRANDOLAPRIL
     Indication: BLOOD PRESSURE INCREASED
     Dosage: UNK
     Route: 065
  12. SULODEXIDE [Suspect]
     Active Substance: SULODEXIDE
     Indication: PRODUCT USED FOR UNKNOWN INDICATION
     Dosage: UNK
     Route: 065
  13. TRANDOLAPRIL. [Suspect]
     Active Substance: TRANDOLAPRIL
     Indication: HEART RATE INCREASED
  14. PREDNISON [Suspect]
     Active Substance: PREDNISONE
     Indication: IDIOPATHIC PULMONARY FIBROSIS
     Dosage: 40 MILLIGRAM, QD,INITIAL DOSE
     Route: 048
     Dates: start: 20071121
  15. BISOPROLOL [Concomitant]
     Active Substance: BISOPROLOL
     Indication: HYPERTENSION
     Dosage: UNK
     Dates: start: 1994
  16. HYDROCHLOROTHIAZIDE. [Concomitant]
     Active Substance: HYDROCHLOROTHIAZIDE
     Indication: HYPERTENSION
     Dosage: UNK
  17. LOSARTAN. [Concomitant]
     Active Substance: LOSARTAN
     Indication: HYPERTENSION
     Dosage: UNK
  18. VERAPAMIL [Suspect]
     Active Substance: VERAPAMIL HYDROCHLORIDE
     Indication: HEART RATE INCREASED

REACTIONS (16)
  - Cough [Unknown]
  - Oxygen saturation decreased [Unknown]
  - Palpitations [Unknown]
  - Carcinoma in situ [Unknown]
  - Bradycardia [Unknown]
  - Condition aggravated [Unknown]
  - Tachycardia [Unknown]
  - Extrasystoles [Unknown]
  - Total lung capacity decreased [Unknown]
  - Oedema [Unknown]
  - Drug tolerance decreased [Unknown]
  - Heart rate increased [Unknown]
  - Urinary tract infection [Unknown]
  - Hypertension [Unknown]
  - Drug abuse [Unknown]
  - Swelling [Unknown]
